FAERS Safety Report 16203809 (Version 1)
Quarter: 2019Q2

REPORT INFORMATION
  Report Type: Spontaneous
  Country: GB (occurrence: GB)
  Receive Date: 20190416
  Receipt Date: 20190416
  Transmission Date: 20190711
  Serious: Yes (Other)
  Sender: FDA-Public Use
  Company Number: GB-INTERCEPT-PM2019000190

PATIENT
  Age: 75 Year
  Sex: Female

DRUGS (5)
  1. UDCA [Concomitant]
     Active Substance: URSODIOL
     Dosage: 250 15MG/KG, TDS
  2. MAGNESIUM [Concomitant]
     Active Substance: MAGNESIUM
  3. OCALIVA [Suspect]
     Active Substance: OBETICHOLIC ACID
     Indication: PRIMARY BILIARY CHOLANGITIS
     Dosage: 5 MG, QW
     Route: 048
     Dates: start: 20181113, end: 20190109
  4. OMEPRAZOLE. [Concomitant]
     Active Substance: OMEPRAZOLE
  5. SPIRONOLACTONE. [Concomitant]
     Active Substance: SPIRONOLACTONE
     Indication: ASCITES
     Dosage: UNK

REACTIONS (3)
  - Model for end stage liver disease score increased [Unknown]
  - Blood bilirubin increased [Not Recovered/Not Resolved]
  - Hepatic failure [Not Recovered/Not Resolved]

NARRATIVE: CASE EVENT DATE: 20181210
